FAERS Safety Report 18650736 (Version 4)
Quarter: 2021Q3

REPORT INFORMATION
  Report Type: Report from Study
  Country: None (occurrence: JP)
  Receive Date: 20201223
  Receipt Date: 20210920
  Transmission Date: 20211014
  Serious: Yes (Death, Other)
  Sender: FDA-Public Use
  Company Number: JP-ABBVIE-19K-087-3187172-00

PATIENT
  Age: 80 Year
  Sex: Female

DRUGS (9)
  1. CARBIDOPA, LEVODOPA AND ENTACAPONE [Concomitant]
     Active Substance: CARBIDOPA\ENTACAPONE\LEVODOPA
     Indication: PARKINSON^S DISEASE
     Route: 048
     Dates: start: 200401
  2. DROXIDOPA [Concomitant]
     Active Substance: DROXIDOPA
     Indication: PARKINSON^S DISEASE
     Route: 048
  3. MAGNESIUM OXIDE. [Concomitant]
     Active Substance: MAGNESIUM OXIDE
     Indication: PRODUCT USED FOR UNKNOWN INDICATION
     Route: 048
  4. DUODOPA [Suspect]
     Active Substance: CARBIDOPA\LEVODOPA
     Dosage: MD: 8.3 ML?CD: 0.9 ML/HR X 16 HRS?ED: 1 ML/UNIT X 1
     Route: 050
     Dates: start: 20200415, end: 20200618
  5. DONEPEZIL HYDROCHLORIDE. [Concomitant]
     Active Substance: DONEPEZIL HYDROCHLORIDE
     Indication: PRODUCT USED FOR UNKNOWN INDICATION
     Route: 048
  6. DUODOPA [Suspect]
     Active Substance: CARBIDOPA\LEVODOPA
     Indication: PARKINSON^S DISEASE
     Dosage: MD: 5.3 ML?CD: 2.5 ML/HR X 16 HRS?ED: 1 ML/UNIT X 1
     Route: 050
     Dates: start: 20190912, end: 20200415
  7. RASAGILINE MESILATE [Concomitant]
     Active Substance: RASAGILINE MESYLATE
     Indication: PARKINSON^S DISEASE
     Route: 048
  8. TELMISARTAN. [Concomitant]
     Active Substance: TELMISARTAN
     Indication: PRODUCT USED FOR UNKNOWN INDICATION
     Route: 048
  9. CARBIDOPA, LEVODOPA AND ENTACAPONE [Concomitant]
     Active Substance: CARBIDOPA\ENTACAPONE\LEVODOPA
     Route: 048

REACTIONS (17)
  - Mobility decreased [Unknown]
  - Fall [Unknown]
  - Feeling abnormal [Unknown]
  - Asphyxia [Fatal]
  - Hyperhidrosis [Unknown]
  - Gait disturbance [Unknown]
  - Tremor [Recovering/Resolving]
  - Musculoskeletal stiffness [Unknown]
  - Loss of personal independence in daily activities [Unknown]
  - Malaise [Recovered/Resolved]
  - Fall [Recovered/Resolved]
  - Stoma site extravasation [Unknown]
  - Seizure [Recovering/Resolving]
  - Dyspnoea [Not Recovered/Not Resolved]
  - Device issue [Unknown]
  - Malaise [Unknown]
  - Dyskinesia [Unknown]

NARRATIVE: CASE EVENT DATE: 20191213
